FAERS Safety Report 6971891-5 (Version None)
Quarter: 2010Q3

REPORT INFORMATION
  Report Type: 
  Country: None (occurrence: None)
  Receive Date: 20100908
  Receipt Date: 20100908
  Transmission Date: 20110219
  Serious: Yes (Hospitalization)
  Sender: FDA-Public Use
  Company Number: None

PATIENT
  Age: 69 Year
  Sex: Male

DRUGS (1)
  1. SULFAMETHOXAZOLE AND TRIMETHOPRIM [Suspect]
     Indication: URINARY TRACT INFECTION
     Dosage: 800/160 MG BID PO
     Route: 048
     Dates: start: 20100718, end: 20100725

REACTIONS (2)
  - BLOOD CREATININE INCREASED [None]
  - BLOOD UREA INCREASED [None]
